FAERS Safety Report 20937057 (Version 1)
Quarter: 2022Q2

REPORT INFORMATION
  Report Type: Spontaneous
  Country: US (occurrence: None)
  Receive Date: 20220609
  Receipt Date: 20220609
  Transmission Date: 20220721
  Serious: No
  Sender: FDA-Public Use
  Company Number: US-ROCHE-2888285

PATIENT
  Sex: Female

DRUGS (19)
  1. ACTEMRA [Suspect]
     Active Substance: TOCILIZUMAB
     Indication: Spondylolisthesis
     Route: 058
     Dates: start: 202106
  2. ACTEMRA [Suspect]
     Active Substance: TOCILIZUMAB
  3. ATORVASTATIN [Concomitant]
     Active Substance: ATORVASTATIN
  4. CALCIUM MAGNESIUM CARBONATE [Concomitant]
     Active Substance: CALCIUM MAGNESIUM CARBONATE
  5. ELMIRON [Concomitant]
     Active Substance: PENTOSAN POLYSULFATE SODIUM
  6. ESTRADIOL [Concomitant]
     Active Substance: ESTRADIOL
  7. FISH OIL [Concomitant]
     Active Substance: FISH OIL
  8. METFORMIN HYDROCHLORIDE [Concomitant]
     Active Substance: METFORMIN HYDROCHLORIDE
  9. SUMATRIPTAN [Concomitant]
     Active Substance: SUMATRIPTAN
  10. SURVANTA [Concomitant]
     Active Substance: BERACTANT
  11. VOLTAREN [Concomitant]
     Active Substance: DICLOFENAC SODIUM
  12. AMITRIPTYLINE [Concomitant]
     Active Substance: AMITRIPTYLINE
  13. DICLOFENAC [Concomitant]
     Active Substance: DICLOFENAC
  14. DULOXETINE HYDROCHLORIDE [Concomitant]
     Active Substance: DULOXETINE HYDROCHLORIDE
  15. ETODOLAC [Concomitant]
     Active Substance: ETODOLAC
  16. FOLIC ACID [Concomitant]
     Active Substance: FOLIC ACID
  17. HYDROCODONE [Concomitant]
     Active Substance: HYDROCODONE
  18. METHOTREXATE [Concomitant]
     Active Substance: METHOTREXATE
  19. XARELTO [Concomitant]
     Active Substance: RIVAROXABAN

REACTIONS (4)
  - Device malfunction [Unknown]
  - Product dose omission issue [Unknown]
  - No adverse event [Unknown]
  - Drug ineffective [Unknown]
